FAERS Safety Report 8905365 (Version 1)
Quarter: 2012Q4

REPORT INFORMATION
  Report Type: 
  Country: CA (occurrence: CA)
  Receive Date: 20121111
  Receipt Date: 20121111
  Transmission Date: 20130627
  Serious: Yes (Other)
  Sender: FDA-Public Use
  Company Number: PHMT2007CA01038

PATIENT
  Sex: Male

DRUGS (5)
  1. SANDOSTATIN LAR [Suspect]
     Indication: CARCINOID TUMOUR
     Dosage: 60 mg every 4 weeks
     Route: 030
     Dates: start: 20050220
  2. GLYBURIDE [Concomitant]
  3. METFORMIN HCL [Concomitant]
  4. ZOCOR [Concomitant]
  5. IMODIUM [Concomitant]

REACTIONS (10)
  - Liver abscess [Unknown]
  - Chills [Unknown]
  - Pyrexia [Unknown]
  - Palpitations [Unknown]
  - Weight increased [Unknown]
  - Flushing [Unknown]
  - Hyperglycaemia [Unknown]
  - Diarrhoea [Unknown]
  - Flatulence [Unknown]
  - Nausea [Unknown]
